FAERS Safety Report 6337879-2 (Version None)
Quarter: 2009Q3

REPORT INFORMATION
  Report Type: 
  Country: None (occurrence: None)
  Receive Date: 20090902
  Receipt Date: 20090827
  Transmission Date: 20100115
  Serious: No
  Sender: FDA-Public Use
  Company Number: AR-ABBOTT-09P-007-0575358-00

PATIENT
  Age: 18 Year
  Sex: Female
  Weight: 68 kg

DRUGS (2)
  1. VALCOTE [Suspect]
     Indication: IMPULSIVE BEHAVIOUR
     Route: 048
     Dates: start: 20090301
  2. VALCOTE [Suspect]
     Route: 048
     Dates: start: 20071201, end: 20090301

REACTIONS (1)
  - MYOPIA [None]
